FAERS Safety Report 18173748 (Version 1)
Quarter: 2020Q3

REPORT INFORMATION
  Report Type: Spontaneous
  Country: IN (occurrence: IN)
  Receive Date: 20200820
  Receipt Date: 20200820
  Transmission Date: 20201103
  Serious: Yes (Other)
  Sender: FDA-Public Use
  Company Number: IN-LUPIN LIMITED-2020-04685

PATIENT
  Age: 9 Month
  Sex: Female
  Weight: 6.9 kg

DRUGS (2)
  1. LEVOTHYROXINE. [Suspect]
     Active Substance: LEVOTHYROXINE
     Indication: THYROID HEMIAGENESIS
     Dosage: 37.5 MICROGRAM, QD
     Route: 065
  2. LEVOTHYROXINE. [Suspect]
     Active Substance: LEVOTHYROXINE
     Indication: CONGENITAL HYPOTHYROIDISM
     Dosage: 50 MICROGRAM, QD (7.24 MCG/KG/DAY)
     Route: 065

REACTIONS (2)
  - Alopecia [Recovered/Resolved]
  - Overdose [Unknown]
